FAERS Safety Report 5613960-8 (Version None)
Quarter: 2008Q1

REPORT INFORMATION
  Report Type: 
  Country: None (occurrence: None)
  Receive Date: 20080205
  Receipt Date: 20080130
  Transmission Date: 20080703
  Serious: Yes (Hospitalization)
  Sender: FDA-Public Use
  Company Number: BR-BAYER-200810926LA

PATIENT
  Age: 33 Year
  Sex: Female

DRUGS (1)
  1. YASMIN [Suspect]
     Indication: ORAL CONTRACEPTION
     Route: 048
     Dates: start: 20041220, end: 20061220

REACTIONS (3)
  - CEREBRAL THROMBOSIS [None]
  - HYPERCHOLESTEROLAEMIA [None]
  - SECONDARY HYPOGONADISM [None]
